FAERS Safety Report 7699865-X (Version None)
Quarter: 2011Q3

REPORT INFORMATION
  Report Type: 
  Country: None (occurrence: None)
  Receive Date: 20110822
  Receipt Date: 20110808
  Transmission Date: 20111222
  Serious: Yes (Hospitalization, Other)
  Sender: FDA-Public Use
  Company Number: US-CELGENEUS-163-21880-11031589

PATIENT
  Sex: Male
  Weight: 83.99 kg

DRUGS (12)
  1. REVLIMID [Suspect]
     Indication: MULTIPLE MYELOMA
     Dosage: 5 MILLIGRAM
     Route: 048
     Dates: start: 20100202
  2. FISH OIL [Concomitant]
     Dosage: 400 MILLIGRAM
     Route: 048
     Dates: start: 20090101
  3. ZESTRIL [Concomitant]
     Dosage: 2.5 MILLIGRAM
     Route: 048
     Dates: start: 19980101
  4. PERCOCET [Concomitant]
     Dosage: 1/2 TABLET
     Route: 048
     Dates: start: 20091001
  5. SLEEP AID [Concomitant]
     Route: 048
     Dates: start: 20100715
  6. REVLIMID [Suspect]
     Dosage: 10 MILLIGRAM
     Route: 048
     Dates: start: 20110324
  7. PLAVIX [Concomitant]
     Dosage: 75 MILLIGRAM
     Route: 048
     Dates: start: 20090401
  8. ZOCOR [Concomitant]
     Dosage: 40 MILLIGRAM
     Route: 048
     Dates: start: 20080101
  9. ASPIRIN [Concomitant]
     Dosage: 325 MILLIGRAM
     Route: 048
     Dates: start: 20090401
  10. TOPROL-XL [Concomitant]
     Dosage: 25 MILLIGRAM
     Route: 048
     Dates: start: 20080101
  11. M.V.I. [Concomitant]
     Route: 048
     Dates: start: 20090101
  12. BONE BUILDER [Concomitant]
     Route: 041
     Dates: start: 20090501

REACTIONS (3)
  - IMMUNOGLOBULINS INCREASED [None]
  - CHOLELITHIASIS [None]
  - SINUS BRADYCARDIA [None]
